FAERS Safety Report 10373359 (Version 2)
Quarter: 2014Q4

REPORT INFORMATION
  Report Type: Spontaneous
  Country: FR (occurrence: FR)
  Receive Date: 20140808
  Receipt Date: 20141104
  Transmission Date: 20150528
  Serious: Yes (Hospitalization)
  Sender: FDA-Public Use
  Company Number: FR-PFIZER INC-2014215647

PATIENT
  Age: 58 Year
  Sex: Female

DRUGS (7)
  1. AOTAL [Concomitant]
     Active Substance: ACAMPROSATE CALCIUM
     Dosage: 1 DF, 1X/DAY
     Dates: start: 20140605, end: 20140628
  2. LAMICTAL [Concomitant]
     Active Substance: LAMOTRIGINE
     Dosage: 100 MG, DAILY
     Dates: start: 20140626, end: 20140627
  3. XEROQUEL [Concomitant]
     Active Substance: QUETIAPINE FUMARATE
     Dosage: 300 MG, 2X/DAY
     Dates: start: 201403, end: 20140628
  4. LAMICTAL [Concomitant]
     Active Substance: LAMOTRIGINE
     Indication: PROPHYLAXIS
     Dosage: 300 MG, 3X/DAY
     Dates: start: 20140619, end: 20140626
  5. SOLU-MEDROL [Suspect]
     Active Substance: METHYLPREDNISOLONE SODIUM SUCCINATE
     Indication: DERMATITIS EXFOLIATIVE
     Dosage: UNK
     Route: 042
     Dates: start: 20140701, end: 20140702
  6. TERCIAN [Concomitant]
     Active Substance: CYAMEMAZINE
     Indication: DEPRESSION
     Dosage: 25 GTT, 1X/DAY
     Dates: start: 20140605, end: 20140628
  7. XEROQUEL [Concomitant]
     Active Substance: QUETIAPINE FUMARATE
     Indication: DEPRESSION
     Dosage: 200 MG, DAILY
     Dates: start: 201111, end: 201403

REACTIONS (1)
  - Endocarditis staphylococcal [Recovered/Resolved]

NARRATIVE: CASE EVENT DATE: 20140702
